FAERS Safety Report 7542221-5 (Version None)
Quarter: 2011Q2

REPORT INFORMATION
  Report Type: 
  Country: None (occurrence: None)
  Receive Date: 20110613
  Receipt Date: 20110602
  Transmission Date: 20111010
  Serious: Yes (Death, Other)
  Sender: FDA-Public Use
  Company Number: US-BAXTER-2011BH016078

PATIENT
  Age: 38 Year
  Sex: Male

DRUGS (1)
  1. DIANEAL [Suspect]
     Indication: PERITONEAL DIALYSIS
     Route: 033
     Dates: end: 20110512

REACTIONS (3)
  - PULMONARY OEDEMA [None]
  - DYSPNOEA [None]
  - MYOCARDIAL INFARCTION [None]
